FAERS Safety Report 11911450 (Version 3)
Quarter: 2016Q1

REPORT INFORMATION
  Report Type: Spontaneous
  Country: US (occurrence: US)
  Receive Date: 20160112
  Receipt Date: 20160212
  Transmission Date: 20160526
  Serious: Yes (Hospitalization, Other)
  Sender: FDA-Public Use
  Company Number: US-PFIZER INC-2016006693

PATIENT
  Age: 50 Year
  Sex: Female
  Weight: 59 kg

DRUGS (9)
  1. ALPRAZOLAM. [Suspect]
     Active Substance: ALPRAZOLAM
     Indication: POST-TRAUMATIC STRESS DISORDER
     Dosage: UNK (GREENSTONE)
  2. PROPANOLOL [Concomitant]
     Active Substance: PROPRANOLOL HYDROCHLORIDE
     Indication: HYPERTENSION
     Dosage: 20 MG, DAILY
     Dates: start: 2008
  3. ALPRAZOLAM MYLAN [Suspect]
     Active Substance: ALPRAZOLAM
     Indication: BIPOLAR DISORDER
  4. XANAX [Suspect]
     Active Substance: ALPRAZOLAM
     Dosage: UNK
  5. ALPRAZOLAM. [Suspect]
     Active Substance: ALPRAZOLAM
     Indication: BIPOLAR DISORDER
  6. GABAPENTIN. [Concomitant]
     Active Substance: GABAPENTIN
     Indication: NEUROPATHY PERIPHERAL
     Dosage: 800 MG, 4X/DAY BY MOUTH
     Route: 048
     Dates: start: 2011
  7. GABAPENTIN. [Concomitant]
     Active Substance: GABAPENTIN
     Indication: AFFECTIVE DISORDER
  8. ALPRAZOLAM MYLAN [Suspect]
     Active Substance: ALPRAZOLAM
     Indication: POST-TRAUMATIC STRESS DISORDER
     Dosage: UNK
  9. LITHIUM. [Concomitant]
     Active Substance: LITHIUM
     Indication: BIPOLAR DISORDER
     Dosage: 300MG IN THE MORNING, 600MG IN THE EVENING (900 MG DAILY)
     Dates: start: 2008

REACTIONS (5)
  - Back disorder [Not Recovered/Not Resolved]
  - Lumbar vertebral fracture [Unknown]
  - Road traffic accident [Unknown]
  - Memory impairment [Not Recovered/Not Resolved]
  - Foot fracture [Unknown]

NARRATIVE: CASE EVENT DATE: 2014
